FAERS Safety Report 9641533 (Version 1)
Quarter: 2013Q4

REPORT INFORMATION
  Report Type: Report from Study
  Country: US (occurrence: US)
  Receive Date: 20131023
  Receipt Date: 20131023
  Transmission Date: 20140711
  Serious: No
  Sender: FDA-Public Use
  Company Number: US-ALEXION-A201302642

PATIENT
  Age: 66 Year
  Sex: Female

DRUGS (2)
  1. SOLIRIS [Suspect]
     Indication: PRODUCT USED FOR UNKNOWN INDICATION
     Dosage: 900 MG, Q2W
     Route: 042
  2. SOLIRIS [Suspect]
     Dosage: 900 MG, Q12D
     Route: 042
     Dates: start: 201306

REACTIONS (3)
  - Sinus congestion [Unknown]
  - Visual impairment [Unknown]
  - Nausea [Unknown]
